FAERS Safety Report 20883156 (Version 4)
Quarter: 2022Q4

REPORT INFORMATION
  Report Type: Report from Study
  Country: US (occurrence: US)
  Receive Date: 20220527
  Receipt Date: 20221128
  Transmission Date: 20230112
  Serious: No
  Sender: FDA-Public Use
  Company Number: US-BIOVITRUM-2022US06734

PATIENT
  Age: 9 Year
  Sex: Female

DRUGS (3)
  1. KINERET [Suspect]
     Active Substance: ANAKINRA
     Indication: Raynaud^s phenomenon
     Dates: start: 20220201
  2. KINERET [Suspect]
     Active Substance: ANAKINRA
     Dates: start: 20220201
  3. KINERET [Suspect]
     Active Substance: ANAKINRA
     Dates: start: 20220101

REACTIONS (6)
  - COVID-19 [Unknown]
  - Blood creatine phosphokinase abnormal [Unknown]
  - Headache [Not Recovered/Not Resolved]
  - Inappropriate schedule of product administration [Unknown]
  - Intentional product misuse [Unknown]
  - Off label use [Unknown]

NARRATIVE: CASE EVENT DATE: 20220101
